FAERS Safety Report 17084131 (Version 1)
Quarter: 2019Q4

REPORT INFORMATION
  Report Type: Spontaneous
  Country: US (occurrence: US)
  Receive Date: 20191127
  Receipt Date: 20191127
  Transmission Date: 20200122
  Serious: No
  Sender: FDA-Public Use
  Company Number: US-MATRIXX INITIATIVES, INC.-2077268

PATIENT
  Age: 78 Year
  Sex: Female
  Weight: 53.64 kg

DRUGS (2)
  1. UNSPECIFIED ALLERGY MEDICATION [Concomitant]
     Active Substance: UNSPECIFIED INGREDIENT
  2. ZICAM COLD REMEDY LOZENGES [Suspect]
     Active Substance: HOMEOPATHICS\ZINC ACETATE\ZINC GLUCONATE
     Indication: NASOPHARYNGITIS
     Route: 048
     Dates: start: 20191125, end: 20191125

REACTIONS (2)
  - Glossitis [None]
  - Ageusia [None]
